FAERS Safety Report 6431219-6 (Version None)
Quarter: 2009Q4

REPORT INFORMATION
  Report Type: 
  Country: None (occurrence: None)
  Receive Date: 20091106
  Receipt Date: 20091029
  Transmission Date: 20100525
  Serious: Yes (Other)
  Sender: FDA-Public Use
  Company Number: IE-ABBOTT-09P-229-0605914-00

PATIENT
  Sex: Female

DRUGS (4)
  1. KLARICID [Suspect]
     Indication: HELICOBACTER TEST
     Route: 048
     Dates: start: 20091002, end: 20091008
  2. PROTIUM [Suspect]
     Indication: HELICOBACTER TEST
     Route: 048
     Dates: start: 20091002, end: 20091008
  3. AMOXICILLIN [Suspect]
     Indication: HELICOBACTER TEST
     Route: 048
     Dates: start: 20091002, end: 20091008
  4. ACETAMINOPHEN [Concomitant]
     Indication: DRUG USE FOR UNKNOWN INDICATION

REACTIONS (4)
  - AGGRESSION [None]
  - CONFUSIONAL STATE [None]
  - DEPRESSION [None]
  - HALLUCINATION [None]
